FAERS Safety Report 8093576-7 (Version None)
Quarter: 2012Q1

REPORT INFORMATION
  Report Type: 
  Country: None (occurrence: None)
  Receive Date: 20120129
  Receipt Date: 20111021
  Transmission Date: 20120608
  Serious: No
  Sender: FDA-Public Use
  Company Number: US-ABBOTT-11P-163-0868323-00

PATIENT
  Sex: Female
  Weight: 90.8 kg

DRUGS (5)
  1. HYDROCHLOROTHIAZIDE [Concomitant]
     Indication: HYPERTENSION
  2. HUMIRA [Suspect]
     Indication: OCULAR SARCOIDOSIS
     Dosage: 3 DOSES
     Route: 058
     Dates: start: 20110801, end: 20110909
  3. METHOTREXATE [Interacting]
     Indication: SARCOIDOSIS
     Dosage: 8 TABLETS ON FRIDAYS
     Route: 048
     Dates: start: 20080101, end: 20110909
  4. DILTIAZEM [Concomitant]
     Indication: HYPERTENSION
  5. HUMIRA [Interacting]
     Route: 058
     Dates: start: 20110930

REACTIONS (9)
  - DRUG INTERACTION [None]
  - RASH [None]
  - FEELING ABNORMAL [None]
  - THERAPEUTIC RESPONSE INCREASED [None]
  - DERMATITIS [None]
  - OFF LABEL USE [None]
  - IRRITABILITY [None]
  - SKIN EXFOLIATION [None]
  - AGITATION [None]
